FAERS Safety Report 8172550-6 (Version None)
Quarter: 2012Q1

REPORT INFORMATION
  Report Type: 
  Country: None (occurrence: None)
  Receive Date: 20120229
  Receipt Date: 20120217
  Transmission Date: 20120608
  Serious: Yes (Hospitalization)
  Sender: FDA-Public Use
  Company Number: US-BAYER-2012-012909

PATIENT
  Age: 39 Year
  Sex: Female
  Weight: 95 kg

DRUGS (6)
  1. IRBESARTAN [Concomitant]
     Dosage: 150 MG, QD
  2. MULTI-VITAMIN [Concomitant]
  3. YASMIN [Suspect]
     Indication: DYSMENORRHOEA
     Dosage: UNK
     Route: 048
     Dates: start: 20050601, end: 20051001
  4. GLIMEPIRIDE [Concomitant]
     Dosage: 2 MG, UNK
  5. CLARITHROMYCIN [Concomitant]
     Dosage: 1000 MG, QD
  6. NAPROXEN [Concomitant]
     Dosage: 500 MG, BID

REACTIONS (2)
  - PULMONARY EMBOLISM [None]
  - DEEP VEIN THROMBOSIS [None]
